FAERS Safety Report 14385043 (Version 9)
Quarter: 2018Q1

REPORT INFORMATION
  Report Type: Report from Study
  Country: US (occurrence: US)
  Receive Date: 20180115
  Receipt Date: 20180125
  Transmission Date: 20180509
  Serious: Yes (Other)
  Sender: FDA-Public Use
  Company Number: US-CONCORDIA PHARMACEUTICALS INC.-GSH201801-000146

PATIENT

DRUGS (2)
  1. BENZYL ALCOHOL [Suspect]
     Active Substance: BENZYL ALCOHOL
  2. SARGRAMOSTIM [Concomitant]
     Active Substance: SARGRAMOSTIM

REACTIONS (1)
  - Vasculitis [Recovered/Resolved]
